FAERS Safety Report 7619911-9 (Version None)
Quarter: 2011Q3

REPORT INFORMATION
  Report Type: 
  Country: None (occurrence: None)
  Receive Date: 20110719
  Receipt Date: 20110713
  Transmission Date: 20111222
  Serious: Yes (Hospitalization, Other)
  Sender: FDA-Public Use
  Company Number: US-ELI_LILLY_AND_COMPANY-US200905004506

PATIENT
  Sex: Female
  Weight: 109.75 kg

DRUGS (18)
  1. BYETTA [Suspect]
     Dosage: 5 UG, BID
  2. TOPROL-XL [Concomitant]
     Dosage: 50 MG, 2/D
     Route: 048
  3. PREVACID [Concomitant]
     Indication: GASTROOESOPHAGEAL REFLUX DISEASE
     Dosage: 30 MG, DAILY (1/D)
     Route: 048
     Dates: start: 19910101
  4. PAROXETINE HCL [Concomitant]
     Dosage: 20 MG, DAILY (1/D)
     Route: 048
  5. BYETTA [Suspect]
     Indication: TYPE 2 DIABETES MELLITUS
     Dosage: UNK, UNKNOWN
     Route: 065
     Dates: start: 20061001, end: 20070301
  6. NITROFURANTOIN [Concomitant]
     Dosage: 100 MG, 2/D
     Route: 048
  7. METFORMIN HCL [Concomitant]
     Indication: DIABETES MELLITUS
     Dates: start: 20000101
  8. TOPROL-XL [Concomitant]
     Dosage: 50 MG, DAILY (1/D)
  9. NICARDIPINE HCL [Concomitant]
     Dosage: 30 MG, 2/D
  10. PREMARIN [Concomitant]
     Indication: HORMONE REPLACEMENT THERAPY
     Dosage: 0.625 MG, DAILY (1/D)
     Route: 048
     Dates: start: 19800101
  11. BENAZEPRIL HYDROCHLORIDE [Concomitant]
     Dosage: 10 MG, DAILY (1/D)
  12. BENAZEPRIL HYDROCHLORIDE [Concomitant]
     Dosage: 20 MG, DAILY (1/D)
  13. AMBIEN [Concomitant]
     Indication: INSOMNIA
     Dosage: UNK, AS NEEDED
     Dates: start: 19840101
  14. HYDROCHLOROTHIAZIDE [Concomitant]
     Dosage: 25 MG, DAILY (1/D)
     Route: 048
  15. LASIX [Concomitant]
     Dosage: 20 MG, DAILY (1/D)
     Route: 048
  16. AVANDIA [Concomitant]
     Dosage: 4 MG, DAILY (1/D)
  17. TYLENOL (CAPLET) [Concomitant]
     Indication: PAIN
     Dosage: UNK, AS NEEDED
     Dates: start: 19850101
  18. ACCUPRIL [Concomitant]
     Dosage: 20 MG, DAILY (1/D)

REACTIONS (2)
  - PANCREATITIS ACUTE [None]
  - WEIGHT DECREASED [None]
